FAERS Safety Report 4943784-6 (Version None)
Quarter: 2006Q1

REPORT INFORMATION
  Report Type: 
  Country: None (occurrence: None)
  Receive Date: 20060314
  Receipt Date: 20051114
  Transmission Date: 20060701
  Serious: Yes (Hospitalization, Disabling)
  Sender: FDA-Public Use
  Company Number: US-MERCK-0511USA02812

PATIENT
  Age: 58 Year
  Sex: Female
  Weight: 130 kg

DRUGS (1)
  1. VIOXX [Suspect]
     Indication: JOINT INJURY
     Route: 048
     Dates: start: 20000331, end: 20011024

REACTIONS (3)
  - ATRIOVENTRICULAR BLOCK [None]
  - CARDIAC OPERATION [None]
  - CHEST PAIN [None]
